FAERS Safety Report 22821242 (Version 2)
Quarter: 2023Q4

REPORT INFORMATION
  Report Type: Spontaneous
  Country: RU (occurrence: RU)
  Receive Date: 20230814
  Receipt Date: 20231127
  Transmission Date: 20240109
  Serious: Yes (Hospitalization, Other)
  Sender: FDA-Public Use
  Company Number: None

PATIENT
  Age: 12 Year
  Sex: Male
  Weight: 39 kg

DRUGS (8)
  1. ORKAMBI [Suspect]
     Active Substance: IVACAFTOR\LUMACAFTOR
     Indication: Cystic fibrosis
     Dosage: 125 MG IVACAFTOR + 100 MG LUMACAFTOR, 4 TABLETS A DAY
     Route: 048
     Dates: start: 20221215, end: 202303
  2. ORKAMBI [Suspect]
     Active Substance: IVACAFTOR\LUMACAFTOR
     Dosage: 125 MG IVACAFTOR + 200 MG LUMACAFTOR
     Route: 048
     Dates: start: 202303, end: 20230801
  3. CREON [Concomitant]
     Active Substance: PANCRELIPASE AMYLASE\PANCRELIPASE LIPASE\PANCRELIPASE PROTEASE
     Indication: Cystic fibrosis
     Dosage: 30 CAPSULES DAILY
     Route: 048
  4. URSODIOL [Concomitant]
     Active Substance: URSODIOL
     Indication: Cystic fibrosis
     Dosage: 750 MG A DAY
     Route: 048
  5. ACETYLCYSTEINE [Concomitant]
     Active Substance: ACETYLCYSTEINE
     Indication: Cystic fibrosis
     Dosage: 600 MG A DAY
     Route: 048
  6. HEPTRAL [Concomitant]
     Active Substance: ADEMETIONINE
     Indication: Hepatic cirrhosis
     Dosage: 800 MG A DAY
     Route: 048
  7. TIGERASE [Concomitant]
     Dosage: 2.5 ML
  8. TOBRAMYCIN [Concomitant]
     Active Substance: TOBRAMYCIN
     Dosage: 600 MG A DAY

REACTIONS (3)
  - Hepatic failure [Recovering/Resolving]
  - Portal hypertension [Unknown]
  - Varices oesophageal [Unknown]

NARRATIVE: CASE EVENT DATE: 20230301
